FAERS Safety Report 7027620-2 (Version None)
Quarter: 2010Q4

REPORT INFORMATION
  Report Type: 
  Country: None (occurrence: None)
  Receive Date: 20101004
  Receipt Date: 20100921
  Transmission Date: 20110411
  Serious: Yes (Hospitalization)
  Sender: FDA-Public Use
  Company Number: IT-WATSON-2010-12955

PATIENT
  Age: 76 Year
  Sex: Male

DRUGS (1)
  1. CODRIX (WATSON LABORATORIES) [Suspect]
     Indication: ABDOMINAL PAIN LOWER
     Dosage: 500/30 MG SINGLE
     Route: 048

REACTIONS (2)
  - ABDOMINAL PAIN [None]
  - SPHINCTER OF ODDI DYSFUNCTION [None]
